FAERS Safety Report 9100628 (Version 1)
Quarter: 2013Q1

REPORT INFORMATION
  Report Type: Report from Study
  Country: CA (occurrence: CA)
  Receive Date: 20130215
  Receipt Date: 20130215
  Transmission Date: 20140127
  Serious: Yes (Other)
  Sender: FDA-Public Use
  Company Number: CA-ROCHE-1191360

PATIENT
  Age: 68 Year
  Sex: 0

DRUGS (1)
  1. AVASTIN [Suspect]
     Indication: COLORECTAL CANCER
     Route: 065
     Dates: start: 201109, end: 201204

REACTIONS (2)
  - Pancytopenia [Unknown]
  - Neuropathy peripheral [Unknown]
